FAERS Safety Report 9232764 (Version 1)
Quarter: 2013Q1

REPORT INFORMATION
  Report Type: Spontaneous
  Country: US (occurrence: None)
  Receive Date: 20121031
  Receipt Date: 20121031
  Transmission Date: 20140127
  Serious: No
  Sender: FDA-Public Use
  Company Number: PHEH2012US011810

PATIENT
  Age: 35 Year
  Sex: Male
  Weight: 77.1 kg

DRUGS (7)
  1. GILENYA [Suspect]
     Indication: MULTIPLE SCLEROSIS
     Route: 048
     Dates: start: 20111212
  2. FLONASE (FLUTICASONE PROPIONATE) [Concomitant]
  3. WELLBUTRIN (BUPROPION HYDROCHLORIDE) [Concomitant]
  4. NAPROXEN (NAPROXEN) [Concomitant]
  5. VITAMIN C [Concomitant]
  6. PRILOSEC [Concomitant]
  7. GABAPENTIN (GABAPENTIN) [Concomitant]

REACTIONS (2)
  - Chest pain [None]
  - Headache [None]
